FAERS Safety Report 25718739 (Version 2)
Quarter: 2025Q3

REPORT INFORMATION
  Report Type: Spontaneous
  Country: US (occurrence: US)
  Receive Date: 20250823
  Receipt Date: 20250913
  Transmission Date: 20251021
  Serious: Yes (Other)
  Sender: AUROBINDO
  Company Number: US-MLMSERVICE-20250806-PI603797-00271-1

PATIENT
  Age: 5 Decade
  Sex: Female

DRUGS (9)
  1. PREDNISONE [Suspect]
     Active Substance: PREDNISONE
     Indication: Dermatomyositis
     Route: 065
  2. PREDNISONE [Suspect]
     Active Substance: PREDNISONE
     Route: 065
  3. MYCOPHENOLATE MOFETIL [Concomitant]
     Active Substance: MYCOPHENOLATE MOFETIL
     Indication: Dermatomyositis
     Dosage: 1500 MILLIGRAM, TWO TIMES A DAY
     Route: 065
  4. APREMILAST [Concomitant]
     Active Substance: APREMILAST
     Indication: Dermatomyositis
     Dosage: 30 MILLIGRAM, TWO TIMES A DAY
     Route: 065
  5. AZATHIOPRINE [Concomitant]
     Active Substance: AZATHIOPRINE
     Indication: Dermatomyositis
     Dosage: 50 MILLIGRAM, TWO TIMES A DAY
     Route: 065
  6. ANIFROLUMAB [Concomitant]
     Active Substance: ANIFROLUMAB
     Indication: Rash
     Route: 065
  7. ANIFROLUMAB [Concomitant]
     Active Substance: ANIFROLUMAB
     Indication: Dysphagia
  8. ANIFROLUMAB [Concomitant]
     Active Substance: ANIFROLUMAB
     Indication: Synovitis
  9. Immunoglobulin [Concomitant]
     Indication: Dermatomyositis
     Route: 042

REACTIONS (2)
  - Steroid diabetes [Unknown]
  - Metabolic dysfunction-associated steatohepatitis [Recovering/Resolving]
